FAERS Safety Report 25887278 (Version 2)
Quarter: 2025Q4

REPORT INFORMATION
  Report Type: Spontaneous
  Country: US (occurrence: US)
  Receive Date: 20251006
  Receipt Date: 20251030
  Transmission Date: 20260117
  Serious: Yes (Other)
  Sender: ROCHE
  Company Number: US-ROCHE-10000399868

PATIENT
  Age: 35 Year
  Sex: Female
  Weight: 104.33 kg

DRUGS (7)
  1. OCREVUS [Suspect]
     Active Substance: OCRELIZUMAB
     Indication: Multiple sclerosis
     Dosage: 1ST SPLIT DOSE, 2ND SPLIT DOSE GIVEN 9/10
     Route: 042
     Dates: start: 20250828
  2. OCREVUS [Suspect]
     Active Substance: OCRELIZUMAB
     Dosage: FREQUENCY WILL BE EVERY 6 MONTHS
     Route: 042
     Dates: start: 20250910
  3. NABUMETONE [Concomitant]
     Active Substance: NABUMETONE
     Route: 048
  4. BACLOFEN [Concomitant]
     Active Substance: BACLOFEN
     Route: 048
  5. NAPROXEN [Concomitant]
     Active Substance: NAPROXEN
     Route: 048
  6. TORADOL [Concomitant]
     Active Substance: KETOROLAC TROMETHAMINE
     Route: 048
  7. FLEXERIL [Concomitant]
     Active Substance: CYCLOBENZAPRINE HYDROCHLORIDE
     Route: 048

REACTIONS (4)
  - Ear pruritus [Recovered/Resolved]
  - Throat irritation [Recovered/Resolved]
  - Cough [Recovered/Resolved]
  - Erythema [Recovered/Resolved]

NARRATIVE: CASE EVENT DATE: 20250828
